FAERS Safety Report 4705373-8 (Version None)
Quarter: 2005Q2

REPORT INFORMATION
  Report Type: 
  Country: None (occurrence: None)
  Receive Date: 20050629
  Receipt Date: 20050224
  Transmission Date: 20051028
  Serious: Yes (Hospitalization)
  Sender: FDA-Public Use
  Company Number: 200310850EU

PATIENT
  Age: 37 Year
  Sex: Female
  Weight: 109 kg

DRUGS (6)
  1. ADRIAMYCIN PFS [Suspect]
     Indication: BREAST CANCER
     Dosage: 131 MG/DAY IV
     Route: 042
     Dates: start: 20030225, end: 20030225
  2. CYCLOPHOSPHAMIDE [Suspect]
     Indication: BREAST CANCER
     Dosage: 1310 MG/DAY IV
     Route: 042
     Dates: start: 20030225, end: 20030225
  3. ZOFRAN [Concomitant]
  4. MOTILIUM [Concomitant]
  5. DEXAMETHASONE [Concomitant]
  6. ZYDOL [Concomitant]

REACTIONS (11)
  - BLOOD PRESSURE INCREASED [None]
  - COLITIS [None]
  - CONSTIPATION [None]
  - ERYTHEMA [None]
  - FAECALOMA [None]
  - FOOD INTOLERANCE [None]
  - GASTROINTESTINAL DISORDER [None]
  - GASTROINTESTINAL OEDEMA [None]
  - HEART RATE INCREASED [None]
  - INTESTINAL STENOSIS [None]
  - LETHARGY [None]
